FAERS Safety Report 9891851 (Version 1)
Quarter: 2014Q1

REPORT INFORMATION
  Report Type: Spontaneous
  Country: US (occurrence: US)
  Receive Date: 20140212
  Receipt Date: 20140212
  Transmission Date: 20141002
  Serious: Yes (Other)
  Sender: FDA-Public Use
  Company Number: US-BAYER-2014-021622

PATIENT
  Age: 35 Year
  Sex: Female

DRUGS (1)
  1. MIRENA [Suspect]
     Dosage: 20 MCG/24HR, CONT
     Route: 015
     Dates: start: 20091027, end: 20140129

REACTIONS (5)
  - Genital haemorrhage [None]
  - Device dislocation [Recovered/Resolved]
  - Pelvic fluid collection [Recovered/Resolved]
  - Device physical property issue [None]
  - Amenorrhoea [None]
